FAERS Safety Report 14322478 (Version 3)
Quarter: 2018Q3

REPORT INFORMATION
  Report Type: Report from Study
  Country: US (occurrence: US)
  Receive Date: 20171225
  Receipt Date: 20180925
  Transmission Date: 20181010
  Serious: Yes (Other)
  Sender: FDA-Public Use
  Company Number: US-MALLINCKRODT-T201705228

PATIENT
  Sex: Female

DRUGS (2)
  1. REPOSITORY CORTICOTROPIN INJECTION [Suspect]
     Active Substance: CORTICOTROPIN
     Indication: PROTEINURIA
     Dosage: 40 UNITS/.5 ML, 2 TIMES PER WEEK
     Route: 058
     Dates: start: 20171106
  2. REPOSITORY CORTICOTROPIN INJECTION [Suspect]
     Active Substance: CORTICOTROPIN
     Indication: NEPHROTIC SYNDROME

REACTIONS (4)
  - Hyperkalaemia [Recovered/Resolved]
  - Visual impairment [Not Recovered/Not Resolved]
  - Astigmatism [Not Recovered/Not Resolved]
  - Diabetes mellitus [Not Recovered/Not Resolved]
